FAERS Safety Report 7496544-9 (Version None)
Quarter: 2011Q2

REPORT INFORMATION
  Report Type: 
  Country: None (occurrence: None)
  Receive Date: 20110520
  Receipt Date: 20110520
  Transmission Date: 20111010
  Serious: Yes (Life-Threatening)
  Sender: FDA-Public Use
  Company Number: None

PATIENT
  Age: 67 Year
  Sex: Female
  Weight: 64.4108 kg

DRUGS (1)
  1. DIOVAN [Suspect]
     Indication: HYPERTENSION
     Dosage: ONE TABLET DAILY
     Dates: start: 20100901, end: 20110413

REACTIONS (6)
  - RENAL FAILURE ACUTE [None]
  - MYALGIA [None]
  - MUSCLE SPASMS [None]
  - VISION BLURRED [None]
  - DYSURIA [None]
  - HEADACHE [None]
